FAERS Safety Report 8603361-2 (Version None)
Quarter: 2012Q3

REPORT INFORMATION
  Report Type: 
  Country: None (occurrence: None)
  Receive Date: 20120817
  Receipt Date: 20120813
  Transmission Date: 20120928
  Serious: Yes (Death)
  Sender: FDA-Public Use
  Company Number: JO-CELGENEUS-088-21880-12070817

PATIENT
  Sex: Female

DRUGS (5)
  1. DEXAMETHASONE [Concomitant]
     Route: 065
     Dates: start: 20120613, end: 20120623
  2. AMIODARONE [Concomitant]
     Dosage: 200 MILLIGRAM
     Route: 065
  3. REVLIMID [Suspect]
     Indication: NON-HODGKIN'S LYMPHOMA REFRACTORY
     Dosage: 10 MILLIGRAM
     Route: 048
     Dates: start: 20120621, end: 20120623
  4. WARFARIN SODIUM [Concomitant]
     Route: 065
  5. CARVEDILOL [Concomitant]
     Dosage: 12.5 MILLIGRAM
     Route: 065

REACTIONS (1)
  - NON-HODGKIN'S LYMPHOMA [None]
